FAERS Safety Report 7333194-9 (Version None)
Quarter: 2011Q1

REPORT INFORMATION
  Report Type: 
  Country: None (occurrence: None)
  Receive Date: 20110304
  Receipt Date: 20110301
  Transmission Date: 20110831
  Serious: Yes (Hospitalization)
  Sender: FDA-Public Use
  Company Number: US-MEDIMMUNE-MEDI-0012751

PATIENT
  Sex: Male

DRUGS (1)
  1. SYNAGIS [Suspect]
     Dates: end: 20110218

REACTIONS (2)
  - ADENOVIRUS INFECTION [None]
  - RESPIRATORY SYNCYTIAL VIRUS INFECTION [None]
